FAERS Safety Report 23804909 (Version 1)
Quarter: 2024Q2

REPORT INFORMATION
  Report Type: Report from Study
  Country: US (occurrence: US)
  Receive Date: 20240501
  Receipt Date: 20240501
  Transmission Date: 20240715
  Serious: Yes (Death, Other)
  Sender: FDA-Public Use
  Company Number: US-TAKEDA-2024TUS035756

PATIENT
  Age: 71 Year
  Sex: Male

DRUGS (1)
  1. FRUQUINTINIB [Suspect]
     Active Substance: FRUQUINTINIB
     Indication: Colon cancer
     Dosage: 5 MILLIGRAM, QD
     Route: 048
     Dates: start: 20240410, end: 20240413

REACTIONS (3)
  - Death [Fatal]
  - Gait disturbance [Unknown]
  - Asthenia [Unknown]

NARRATIVE: CASE EVENT DATE: 20240412
